FAERS Safety Report 17245246 (Version 2)
Quarter: 2020Q1

REPORT INFORMATION
  Report Type: Report from Study
  Country: US (occurrence: US)
  Receive Date: 20200108
  Receipt Date: 20200306
  Transmission Date: 20200409
  Serious: Yes (Other)
  Sender: FDA-Public Use
  Company Number: US-ROCHE-2513028

PATIENT
  Sex: Female

DRUGS (1)
  1. OCREVUS [Suspect]
     Active Substance: OCRELIZUMAB
     Indication: RELAPSING MULTIPLE SCLEROSIS
     Dosage: INFUSE 600MG INTRAVENOUSLY EVERY 6 MONTH(S)?VIAL, 300 MG
     Route: 042
     Dates: start: 20190731

REACTIONS (7)
  - Nasal congestion [Recovered/Resolved]
  - Alopecia [Not Recovered/Not Resolved]
  - Cellulitis [Recovered/Resolved]
  - Peripheral coldness [Recovered/Resolved]
  - Muscle spasms [Recovered/Resolved]
  - Localised infection [Recovered/Resolved]
  - Chills [Recovered/Resolved]
